FAERS Safety Report 16896048 (Version 1)
Quarter: 2019Q4

REPORT INFORMATION
  Report Type: Spontaneous
  Country: US (occurrence: US)
  Receive Date: 20190814
  Receipt Date: 20190814
  Transmission Date: 20200122
  Serious: Yes (Life-Threatening, Hospitalization)
  Sender: FDA-Public Use
  Company Number: None

PATIENT
  Age: 57 Year
  Sex: Male

DRUGS (2)
  1. SODIUM BICARBONATE. [Concomitant]
     Active Substance: SODIUM BICARBONATE
  2. ATORVASTATIN [Suspect]
     Active Substance: ATORVASTATIN
     Indication: HYPERLIPIDAEMIA
     Route: 048
     Dates: start: 20190417, end: 20190625

REACTIONS (5)
  - Blood creatine phosphokinase increased [None]
  - Hepatic enzyme increased [None]
  - Myalgia [None]
  - Rhabdomyolysis [None]
  - Chromaturia [None]

NARRATIVE: CASE EVENT DATE: 20190625
